FAERS Safety Report 13032332 (Version 1)
Quarter: 2016Q4

REPORT INFORMATION
  Report Type: Spontaneous
  Country: FR (occurrence: FR)
  Receive Date: 20161215
  Receipt Date: 20161215
  Transmission Date: 20170207
  Serious: Yes (Hospitalization)
  Sender: FDA-Public Use
  Company Number: FR-IMPAX LABORATORIES, INC-2016-IPXL-02296

PATIENT
  Age: 65 Year
  Sex: Female
  Weight: 57 kg

DRUGS (9)
  1. ADRENACLICK [Suspect]
     Active Substance: EPINEPHRINE
     Indication: ANAPHYLACTIC REACTION
     Dosage: TITRATED BOLUSES (0.02 MG +0.01 MG + 0.01 MG + 0.01 MG FOLLOWED BY 0.2 MG), UNK
     Route: 042
  2. PROPOFOL. [Concomitant]
     Active Substance: PROPOFOL
     Indication: ANAESTHESIA
     Dosage: 130 MG, UNK
     Route: 042
  3. VOLUVEN [Concomitant]
     Active Substance: HYDROXYETHYL STARCH 130/0.4
     Indication: VOLUME BLOOD INCREASED
     Dosage: 500 ML (ALONG WITH EPINEPHRINE), UNK
     Route: 042
  4. ADRENACLICK [Suspect]
     Active Substance: EPINEPHRINE
     Indication: VASOPLEGIA SYNDROME
     Dosage: 2 MG, UNK
     Route: 042
  5. SUCCINYLCHOLINE [Concomitant]
     Active Substance: SUCCINYLCHOLINE
     Indication: ENDOTRACHEAL INTUBATION
     Dosage: 60 MG, UNK
     Route: 042
  6. ADRENACLICK [Suspect]
     Active Substance: EPINEPHRINE
     Dosage: 1 MG (4 DOSES), UNK
     Route: 042
  7. SUFENTANIL [Concomitant]
     Active Substance: SUFENTANIL
     Indication: ANAESTHESIA
     Dosage: 100 ?G, UNK
     Route: 042
  8. VOLUVEN [Concomitant]
     Active Substance: HYDROXYETHYL STARCH 130/0.4
     Dosage: 2000 ML (ALONG WITH EPINEPHRINE), UNK
     Route: 042
  9. ADRENACLICK [Suspect]
     Active Substance: EPINEPHRINE
     Dosage: 0.6 MCG/KG/MIN, CONTINUOUS INFUSION
     Route: 065

REACTIONS (2)
  - Stress cardiomyopathy [Recovering/Resolving]
  - Generalised erythema [Unknown]
